FAERS Safety Report 16001112 (Version 2)
Quarter: 2019Q1

REPORT INFORMATION
  Report Type: Spontaneous
  Country: JP (occurrence: JP)
  Receive Date: 20190225
  Receipt Date: 20190328
  Transmission Date: 20190418
  Serious: Yes (Hospitalization)
  Sender: FDA-Public Use
  Company Number: JP-SEATTLE GENETICS-2019SGN00430

PATIENT
  Sex: Male

DRUGS (1)
  1. ADCETRIS [Suspect]
     Active Substance: BRENTUXIMAB VEDOTIN
     Indication: HODGKIN^S DISEASE
     Dosage: 1.8 MILLIGRAM/KILOGRAM, Q21D
     Route: 041
     Dates: start: 201812

REACTIONS (2)
  - Rash generalised [Recovering/Resolving]
  - Generalised erythema [Recovering/Resolving]

NARRATIVE: CASE EVENT DATE: 201812
